FAERS Safety Report 15341829 (Version 3)
Quarter: 2019Q4

REPORT INFORMATION
  Report Type: Spontaneous
  Country: FR (occurrence: FR)
  Receive Date: 20180901
  Receipt Date: 20191121
  Transmission Date: 20200122
  Serious: Yes (Hospitalization, Other)
  Sender: FDA-Public Use
  Company Number: FR-AUROBINDO-AUR-APL-2018-043132

PATIENT
  Age: 16 Year
  Sex: Female

DRUGS (3)
  1. BECLOMETASONE;FORMOTEROL [Concomitant]
     Active Substance: BECLOMETHASONE\FORMOTEROL
     Indication: ASTHMA
     Dosage: UNK
     Route: 065
  2. SALBUTAMOL [Concomitant]
     Active Substance: ALBUTEROL
     Indication: ASTHMA
     Dosage: UNK
     Route: 065
  3. RISPERIDONE. [Suspect]
     Active Substance: RISPERIDONE
     Indication: HALLUCINATION, AUDITORY
     Dosage: 1 MILLIGRAM, DAILY
     Route: 065
     Dates: start: 201611, end: 201703

REACTIONS (7)
  - Papilloedema [Unknown]
  - Suicidal ideation [Recovered/Resolved]
  - Cerebrospinal fluid leakage [Unknown]
  - Cerebrovascular stenosis [Unknown]
  - Weight increased [Recovered/Resolved]
  - Diplopia [Not Recovered/Not Resolved]
  - Intracranial pressure increased [Recovered/Resolved]

NARRATIVE: CASE EVENT DATE: 201703
